FAERS Safety Report 12219258 (Version 1)
Quarter: 2016Q1

REPORT INFORMATION
  Report Type: Spontaneous
  Country: CH (occurrence: CH)
  Receive Date: 20160329
  Receipt Date: 20160329
  Transmission Date: 20160526
  Serious: Yes (Other)
  Sender: FDA-Public Use
  Company Number: PHHY2016CH038606

PATIENT

DRUGS (13)
  1. BIOPRED//PREDNISONE [Concomitant]
     Indication: IMMUNOSUPPRESSANT DRUG THERAPY
  2. METOPROLOL. [Suspect]
     Active Substance: METOPROLOL
     Indication: SYSTOLIC DYSFUNCTION
     Dosage: UNK
     Route: 065
  3. ACENOCOUMAROL [Concomitant]
     Active Substance: ACENOCOUMAROL
     Indication: ANTICOAGULANT THERAPY
     Route: 048
  4. CYCLOSPORINE. [Concomitant]
     Active Substance: CYCLOSPORINE
     Indication: LIVER TRANSPLANT
     Route: 065
  5. CYCLOSPORINE. [Concomitant]
     Active Substance: CYCLOSPORINE
     Indication: IMMUNOSUPPRESSANT DRUG THERAPY
  6. AZAPIN//AZATHIOPRINE [Concomitant]
     Indication: LIVER TRANSPLANT
     Route: 065
  7. CARNITINA//CARNITINE [Concomitant]
     Indication: ACIDOSIS
     Dosage: UNK
     Route: 065
  8. METRONID//METRONIDAZOLE [Concomitant]
     Indication: ACIDOSIS
     Dosage: 1 WEEK MONTHLY
     Route: 065
  9. BIOPRED//PREDNISONE [Concomitant]
     Indication: LIVER TRANSPLANT
     Route: 065
  10. ENALAPRIL [Suspect]
     Active Substance: ENALAPRIL
     Indication: SYSTOLIC DYSFUNCTION
     Dosage: UNK
     Route: 065
  11. TORASEMIDE [Suspect]
     Active Substance: TORSEMIDE
     Indication: SYSTOLIC DYSFUNCTION
     Route: 065
  12. AZAPIN//AZATHIOPRINE [Concomitant]
     Indication: IMMUNOSUPPRESSANT DRUG THERAPY
  13. DIGOXIN. [Suspect]
     Active Substance: DIGOXIN
     Indication: SYSTOLIC DYSFUNCTION
     Route: 065

REACTIONS (4)
  - Mitral valve incompetence [Recovered/Resolved]
  - Drug ineffective [Unknown]
  - Congestive cardiomyopathy [Recovered/Resolved]
  - Pulmonary hypertension [Unknown]
